FAERS Safety Report 6114146-3 (Version None)
Quarter: 2009Q1

REPORT INFORMATION
  Report Type: 
  Country: None (occurrence: None)
  Receive Date: 20090312
  Receipt Date: 20080521
  Transmission Date: 20090719
  Serious: No
  Sender: FDA-Public Use
  Company Number: US-ABBOTT-08P-163-0452921-00

PATIENT
  Sex: Female

DRUGS (4)
  1. DEPAKOTE [Suspect]
     Indication: CONVULSION
     Dates: start: 20010101, end: 20080312
  2. INTERFERON BETA-1A [Suspect]
     Indication: MULTIPLE SCLEROSIS
     Route: 058
     Dates: start: 20080208
  3. CLOPIDOGREL [Concomitant]
     Indication: CEREBROVASCULAR ACCIDENT
  4. EZETIMIBE [Concomitant]
     Indication: DRUG USE FOR UNKNOWN INDICATION

REACTIONS (4)
  - AMMONIA ABNORMAL [None]
  - DIARRHOEA [None]
  - FATIGUE [None]
  - PAIN [None]
